FAERS Safety Report 11590110 (Version 1)
Quarter: 2015Q4

REPORT INFORMATION
  Report Type: Report from Study
  Country: DE (occurrence: DE)
  Receive Date: 20151002
  Receipt Date: 20151002
  Transmission Date: 20160304
  Serious: Yes (Death, Other)
  Sender: FDA-Public Use
  Company Number: DE-INCYTE CORPORATION-2014IN004083

PATIENT
  Age: 76 Year
  Sex: Female

DRUGS (20)
  1. ALLOPURINOL. [Concomitant]
     Active Substance: ALLOPURINOL
     Indication: PROPHYLAXIS
     Dosage: UNK
     Route: 065
     Dates: start: 20120903, end: 201501
  2. VITAMIN B6 [Concomitant]
     Active Substance: PYRIDOXINE HYDROCHLORIDE
     Indication: PROPHYLAXIS
     Dosage: UNK
     Route: 065
     Dates: start: 20130211, end: 201501
  3. JAKAFI [Suspect]
     Active Substance: RUXOLITINIB
     Dosage: 20 MG, UNK
     Route: 065
     Dates: start: 20141016, end: 20141019
  4. JAKAFI [Suspect]
     Active Substance: RUXOLITINIB
     Dosage: UNK MG, UNK
     Route: 065
     Dates: start: 20141101, end: 20141117
  5. JAKAFI [Suspect]
     Active Substance: RUXOLITINIB
     Dosage: 10 MG
     Route: 065
     Dates: start: 20141118
  6. TILIDIN [Concomitant]
     Active Substance: NALOXONE HYDROCHLORIDE\TILIDINE HYDROCHLORIDE
     Indication: BONE PAIN
     Dosage: UNK
     Route: 065
     Dates: start: 201501
  7. JAKAFI [Suspect]
     Active Substance: RUXOLITINIB
     Dosage: UNK MG, UNK
     Route: 065
     Dates: start: 20141201
  8. EPOETIN ZETA [Concomitant]
     Active Substance: ERYTHROPOIETIN
     Indication: COOMBS POSITIVE HAEMOLYTIC ANAEMIA
     Dosage: UNK
     Route: 065
     Dates: start: 20141009, end: 201501
  9. JAKAFI [Suspect]
     Active Substance: RUXOLITINIB
     Dosage: UNK MG, UNK
     Route: 065
     Dates: start: 20140814, end: 20141015
  10. JAKAFI [Suspect]
     Active Substance: RUXOLITINIB
     Dosage: 10 MG
     Route: 065
     Dates: start: 20141020, end: 20141031
  11. DIPIDOLOR [Concomitant]
     Active Substance: PIRITRAMIDE
     Indication: BONE PAIN
     Dosage: UNK
     Dates: start: 20141118
  12. METOPROLOL [Concomitant]
     Active Substance: METOPROLOL
     Indication: TACHYCARDIA
     Dosage: UNK
     Route: 065
     Dates: start: 201501
  13. JAKAFI [Suspect]
     Active Substance: RUXOLITINIB
     Dosage: 30 MG
     Route: 065
     Dates: start: 20140605, end: 20140813
  14. FENTANYL. [Concomitant]
     Active Substance: FENTANYL
     Indication: BONE PAIN
     Dosage: UNK
     Route: 065
     Dates: start: 201501
  15. DIGITOXIN [Concomitant]
     Active Substance: DIGITOXIN
     Indication: ATRIAL FIBRILLATION
     Dosage: UNK
     Route: 065
     Dates: start: 201501
  16. JAKAFI [Suspect]
     Active Substance: RUXOLITINIB
     Indication: MYELOFIBROSIS
     Dosage: UNK
     Route: 065
     Dates: start: 20110825
  17. BUSCOPON [Concomitant]
     Indication: BONE PAIN
     Dosage: UNK
     Route: 065
     Dates: start: 20141103
  18. DEFERASIROX [Concomitant]
     Active Substance: DEFERASIROX
     Indication: PROPHYLAXIS
     Dosage: UNK
     Route: 065
     Dates: start: 20110824, end: 201501
  19. NOVAMIN [Concomitant]
     Active Substance: PROCHLORPERAZINE MALEATE
     Indication: BONE PAIN
     Dosage: UNK
     Route: 065
     Dates: start: 20121217, end: 201501
  20. VITAMIN B12 [Concomitant]
     Active Substance: CYANOCOBALAMIN
     Indication: PROPHYLAXIS
     Dosage: UNK
     Route: 065
     Dates: start: 20130211, end: 201501

REACTIONS (6)
  - Urinary tract infection [Not Recovered/Not Resolved]
  - Drug ineffective [Unknown]
  - Oedema peripheral [Recovered/Resolved]
  - Clostridium difficile infection [Recovered/Resolved]
  - Myelofibrosis [Fatal]
  - Urinary tract infection [Recovered/Resolved]

NARRATIVE: CASE EVENT DATE: 20140924
